FAERS Safety Report 8935075 (Version 3)
Quarter: 2012Q4

REPORT INFORMATION
  Report Type: 
  Country: NL (occurrence: NL)
  Receive Date: 20121129
  Receipt Date: 20121213
  Transmission Date: 20130627
  Serious: Yes (Hospitalization)
  Sender: FDA-Public Use
  Company Number: NL-UCBSA-072006

PATIENT
  Sex: Female

DRUGS (2)
  1. CIMZIA [Suspect]
     Indication: RHEUMATOID ARTHRITIS
     Dosage: 0,2,4 WEEKS .LOT NO.=33324,38703
     Route: 058
     Dates: start: 20100628, end: 2010
  2. CIMZIA [Suspect]
     Indication: RHEUMATOID ARTHRITIS
     Dosage: LOT NO.=33324,38703
     Route: 058
     Dates: start: 2010, end: 20110627

REACTIONS (1)
  - Hospitalisation [Unknown]
